FAERS Safety Report 4519008-0 (Version None)
Quarter: 2004Q4

REPORT INFORMATION
  Report Type: 
  Country: None (occurrence: None)
  Receive Date: 20041203
  Receipt Date: 20041203
  Transmission Date: 20050328
  Serious: Yes (Other)
  Sender: FDA-Public Use
  Company Number: None

PATIENT
  Age: 35 Year
  Sex: Female
  Weight: 58.9676 kg

DRUGS (2)
  1. METROGEL [Suspect]
     Indication: BACTERIAL INFECTION
     Dosage: 5 DAYS
     Dates: start: 20040909, end: 20040929
  2. METROGEL [Suspect]
     Indication: VAGINAL INFECTION
     Dosage: 5 DAYS
     Dates: start: 20040909, end: 20040929

REACTIONS (1)
  - GENITAL BURNING SENSATION [None]
